FAERS Safety Report 12584364 (Version 1)
Quarter: 2016Q3

REPORT INFORMATION
  Report Type: Spontaneous
  Country: FR (occurrence: FR)
  Receive Date: 20160722
  Receipt Date: 20160722
  Transmission Date: 20161109
  Serious: Yes (Other)
  Sender: FDA-Public Use
  Company Number: FR-MYLANLABS-2016M1010319

PATIENT

DRUGS (5)
  1. LINEZOLID. [Suspect]
     Active Substance: LINEZOLID
     Indication: MYCOBACTERIUM CHELONAE INFECTION
     Dosage: LATER DOSE WAS INCREASED TO 600MG 4 TIMES A DAY
     Route: 065
  2. CLARITHROMYCIN. [Interacting]
     Active Substance: CLARITHROMYCIN
     Indication: MYCOBACTERIUM CHELONAE INFECTION
     Dosage: 500 MG, BID
     Route: 065
  3. TIGECYCLINE. [Concomitant]
     Active Substance: TIGECYCLINE
     Indication: MYCOBACTERIUM CHELONAE INFECTION
     Dosage: 100 MG, QD
     Route: 065
  4. LINEZOLID. [Suspect]
     Active Substance: LINEZOLID
     Dosage: 600 MG, QID
     Route: 065
  5. CLARITHROMYCIN. [Interacting]
     Active Substance: CLARITHROMYCIN
     Dosage: 250 MG, BID
     Route: 065

REACTIONS (8)
  - Overdose [Unknown]
  - Dizziness [Unknown]
  - Myalgia [Unknown]
  - Arthralgia [Unknown]
  - Thrombocytopenia [Unknown]
  - Hypoacusis [Unknown]
  - Drug interaction [Unknown]
  - Tinnitus [Unknown]
